FAERS Safety Report 25540093 (Version 1)
Quarter: 2025Q3

REPORT INFORMATION
  Report Type: Spontaneous
  Country: US (occurrence: None)
  Receive Date: 20250710
  Receipt Date: 20250710
  Transmission Date: 20251020
  Serious: Yes (Disabling)
  Sender: FDA-CTU
  Company Number: None

PATIENT
  Age: 73 Year
  Sex: Female
  Weight: 77.4 kg

DRUGS (16)
  1. PROLIA [Suspect]
     Active Substance: DENOSUMAB
     Indication: Bone density decreased
     Route: 058
     Dates: start: 20231207
  2. fish oil/Omega 3 [Concomitant]
  3. COENZYME Q10 [Concomitant]
     Active Substance: DIETARY SUPPLEMENT\UBIDECARENONE
  4. PRILOSEC [Concomitant]
     Active Substance: OMEPRAZOLE MAGNESIUM
  5. ALPHA LIPOIC ACID [Concomitant]
     Active Substance: .ALPHA.-LIPOIC ACID
  6. Probiotics (GI0 [Concomitant]
  7. MAGNESIUM [Concomitant]
     Active Substance: MAGNESIUM
  8. CALCIUM [Concomitant]
     Active Substance: CALCIUM
  9. VITAMIN D NOS [Concomitant]
     Active Substance: CHOLECALCIFEROL\ERGOCALCIFEROL
  10. ASPIRIN [Concomitant]
     Active Substance: ASPIRIN
  11. GABAPENTIN [Concomitant]
     Active Substance: GABAPENTIN
  12. COLACE [Concomitant]
     Active Substance: DOCUSATE SODIUM
  13. SENOKOT [Concomitant]
     Active Substance: SENNOSIDES
  14. MAGNESIUM HYDROXIDE [Concomitant]
     Active Substance: MAGNESIUM HYDROXIDE
  15. MELOXICAM [Concomitant]
     Active Substance: MELOXICAM
  16. MORPHINE SULFATE [Concomitant]
     Active Substance: MORPHINE SULFATE

REACTIONS (11)
  - Joint swelling [None]
  - Sensory disturbance [None]
  - Muscle spasms [None]
  - Peripheral vascular disorder [None]
  - Alopecia [None]
  - Rash [None]
  - Fungal infection [None]
  - Insomnia [None]
  - Pain [None]
  - Bone pain [None]
  - Impaired healing [None]

NARRATIVE: CASE EVENT DATE: 20231223
